FAERS Safety Report 20415343 (Version 1)
Quarter: 2022Q1

REPORT INFORMATION
  Report Type: Spontaneous
  Country: DE (occurrence: DE)
  Receive Date: 20220202
  Receipt Date: 20220202
  Transmission Date: 20220424
  Serious: Yes (Death, Life-Threatening, Hospitalization, Other)
  Sender: FDA-Public Use
  Company Number: None

PATIENT
  Age: 69 Year
  Sex: Female

DRUGS (4)
  1. MYCOPHENOLATE MOFETIL [Suspect]
     Active Substance: MYCOPHENOLATE MOFETIL
     Indication: Immunosuppressant drug therapy
     Route: 065
     Dates: start: 2004, end: 201910
  2. METHYLPREDNISOLONE [Suspect]
     Active Substance: METHYLPREDNISOLONE
     Indication: Immunosuppressant drug therapy
     Dates: start: 2004, end: 201910
  3. TACROLIMUS [Suspect]
     Active Substance: TACROLIMUS
     Indication: Immunosuppressant drug therapy
     Route: 065
     Dates: start: 2004, end: 201910
  4. METHYLPREDNISOLONE [Suspect]
     Active Substance: METHYLPREDNISOLONE
     Indication: Immunosuppressant drug therapy
     Dosage: 2 MG, QD
     Route: 065
     Dates: start: 2009, end: 202102

REACTIONS (8)
  - Metastases to lymph nodes [Unknown]
  - Neoplasm recurrence [Recovering/Resolving]
  - Metastases to bone [Recovering/Resolving]
  - Metastases to pleura [Recovering/Resolving]
  - Squamous cell carcinoma of skin [Recovering/Resolving]
  - Metastases to lung [Recovering/Resolving]
  - Metastases to spine [Recovering/Resolving]
  - Sepsis [Fatal]

NARRATIVE: CASE EVENT DATE: 20190401
